FAERS Safety Report 10442400 (Version 4)
Quarter: 2015Q3

REPORT INFORMATION
  Report Type: Spontaneous
  Country: US (occurrence: US)
  Receive Date: 20140909
  Receipt Date: 20150709
  Transmission Date: 20151125
  Serious: Yes (Hospitalization, Other)
  Sender: FDA-Public Use
  Company Number: US-BAYER-2014-129582

PATIENT
  Age: 21 Year
  Sex: Female
  Weight: 125 kg

DRUGS (5)
  1. MOTRIN [Concomitant]
     Active Substance: IBUPROFEN
  2. PHENDIMETRAZINE [Concomitant]
     Active Substance: PHENDIMETRAZINE
  3. MIRENA [Suspect]
     Active Substance: LEVONORGESTREL
     Indication: MENORRHAGIA
     Dosage: 20 MCG/24HR, CONT
     Route: 015
     Dates: start: 20110111
  4. DOXYCYCLINE. [Concomitant]
     Active Substance: DOXYCYCLINE
     Indication: RASH
  5. MIRENA [Suspect]
     Active Substance: LEVONORGESTREL
     Indication: CONTRACEPTION
     Dosage: 20 MCG/24HR, CONT
     Route: 015
     Dates: start: 20110415, end: 20110512

REACTIONS (10)
  - Device dislocation [None]
  - Device breakage [None]
  - Complication of device removal [None]
  - Abdominal pain lower [None]
  - Vaginal haemorrhage [None]
  - Device defective [None]
  - Pain [None]
  - Device difficult to use [None]
  - Injury [None]
  - Back pain [None]

NARRATIVE: CASE EVENT DATE: 201104
